FAERS Safety Report 5569047-6 (Version None)
Quarter: 2007Q4

REPORT INFORMATION
  Report Type: 
  Country: None (occurrence: None)
  Receive Date: 20071220
  Receipt Date: 20070604
  Transmission Date: 20080405
  Serious: No
  Sender: FDA-Public Use
  Company Number: A0654078A

PATIENT
  Age: 68 Year
  Sex: Male

DRUGS (1)
  1. AVODART [Suspect]
     Indication: BENIGN PROSTATIC HYPERPLASIA
     Dosage: .5MG PER DAY
     Route: 048
     Dates: end: 20070527

REACTIONS (5)
  - ARTHRALGIA [None]
  - DYSPEPSIA [None]
  - ERECTILE DYSFUNCTION [None]
  - MYALGIA [None]
  - TRIGEMINAL NEURALGIA [None]
